FAERS Safety Report 13694022 (Version 1)
Quarter: 2017Q2

REPORT INFORMATION
  Report Type: Report from Study
  Country: None (occurrence: BR)
  Receive Date: 20170627
  Receipt Date: 20170627
  Transmission Date: 20170830
  Serious: Yes (Other)
  Sender: FDA-Public Use
  Company Number: BR-ABBVIE-17K-020-2018484-00

PATIENT
  Sex: Female
  Weight: 85 kg

DRUGS (9)
  1. MILGAMMA [Concomitant]
     Active Substance: VITAMIN B
     Indication: FLUID RETENTION
     Route: 048
     Dates: start: 2016
  2. ADDERA D3 [Concomitant]
     Active Substance: CHOLECALCIFEROL
     Indication: VITAMIN SUPPLEMENTATION
     Route: 048
     Dates: start: 2016
  3. ATACAND [Concomitant]
     Active Substance: CANDESARTAN CILEXETIL
     Indication: HYPERTENSION
     Route: 048
  4. ETORICOXIB [Concomitant]
     Active Substance: ETORICOXIB
     Indication: PAIN
     Route: 048
     Dates: start: 2016
  5. LEFLUNOMIDE. [Concomitant]
     Active Substance: LEFLUNOMIDE
     Indication: RHEUMATIC DISORDER
     Route: 048
     Dates: start: 201703
  6. HUMIRA [Suspect]
     Active Substance: ADALIMUMAB
     Indication: RHEUMATOID ARTHRITIS
     Route: 058
     Dates: start: 20161006
  7. PARACETAMOL + TRAMADOL [Concomitant]
     Indication: PAIN
     Route: 048
     Dates: start: 2016
  8. OMEPRAZOLE. [Concomitant]
     Active Substance: OMEPRAZOLE
     Indication: GASTRIC DISORDER
     Route: 048
     Dates: start: 2016
  9. METHOTREXATE. [Concomitant]
     Active Substance: METHOTREXATE
     Indication: ARTHRITIS
     Route: 048
     Dates: start: 201608

REACTIONS (2)
  - Ulcer [Unknown]
  - Neoplasm malignant [Unknown]

NARRATIVE: CASE EVENT DATE: 2016
